FAERS Safety Report 23382975 (Version 2)
Quarter: 2024Q1

REPORT INFORMATION
  Report Type: Spontaneous
  Country: US (occurrence: US)
  Receive Date: 20240109
  Receipt Date: 20240125
  Transmission Date: 20240410
  Serious: No
  Sender: FDA-Public Use
  Company Number: US-BEH-2024167055

PATIENT
  Age: 65 Year
  Sex: Female

DRUGS (1)
  1. HIZENTRA [Suspect]
     Active Substance: HUMAN IMMUNOGLOBULIN G
     Dosage: UNK
     Route: 058
     Dates: start: 2016

REACTIONS (3)
  - Lymphadenopathy [Unknown]
  - Injection site lymphadenopathy [Unknown]
  - Pseudolymphoma [Unknown]

NARRATIVE: CASE EVENT DATE: 20230901
